FAERS Safety Report 9976226 (Version 1)
Quarter: 2014Q1

REPORT INFORMATION
  Report Type: Report from Study
  Country: US (occurrence: US)
  Receive Date: 20140306
  Receipt Date: 20140306
  Transmission Date: 20141002
  Serious: No
  Sender: FDA-Public Use
  Company Number: US-ABBVIE-13P-163-1166425-00

PATIENT
  Age: 62 Year
  Sex: Female

DRUGS (10)
  1. HUMIRA [Suspect]
     Indication: CROHN^S DISEASE
     Dates: start: 20131101
  2. HUMIRA [Suspect]
     Dates: start: 20131102
  3. ZOLOFT [Concomitant]
     Indication: DEPRESSION
  4. CLARINEX [Concomitant]
     Indication: HYPERSENSITIVITY
  5. TOVIAZ [Concomitant]
     Indication: HYPERTONIC BLADDER
  6. ASACOL [Concomitant]
     Indication: CROHN^S DISEASE
  7. PRILOSEC [Concomitant]
     Indication: DYSPEPSIA
  8. PROVENTIL HFA [Concomitant]
     Indication: ASTHMA EXERCISE INDUCED
     Dosage: BEFORE I WORK OUT
  9. VITAMINS [Concomitant]
     Indication: PRODUCT USED FOR UNKNOWN INDICATION
     Dosage: DAILY
  10. RECLAST [Concomitant]
     Indication: OSTEOPOROSIS

REACTIONS (2)
  - Injection site pain [Recovered/Resolved]
  - Injection site bruising [Recovered/Resolved]
